FAERS Safety Report 8394271-7 (Version None)
Quarter: 2012Q1

REPORT INFORMATION
  Report Type: 
  Country: None (occurrence: None)
  Receive Date: 20120323
  Receipt Date: 20110831
  Transmission Date: 20120608
  Serious: Yes (Hospitalization, Other)
  Sender: FDA-Public Use
  Company Number: 163-21880-11050659

PATIENT
  Age: 61 Year
  Sex: Female

DRUGS (16)
  1. METFORMIN (METFORMIN)(500 MILLIGRAM, TABLETS) [Concomitant]
  2. POTASSIUM (POTASSIUM)(75 MILLIGRAM, TABLETS) [Concomitant]
  3. FISH OIL (FISH OIL)(1000 MILLIGRAM, CAPSULES) [Concomitant]
  4. CALCIUM (CALCIUM)(500 MILLIGRAM, TABLETS) [Concomitant]
  5. NAPROXEN (NAPROXEN)(500 MILLIGRAM, TABLETS) [Concomitant]
  6. REVLIMID [Suspect]
     Indication: MULTIPLE MYELOMA
     Dosage: SEE IMAGE
     Route: 048
     Dates: start: 20110311
  7. REVLIMID [Suspect]
     Indication: MULTIPLE MYELOMA
     Dosage: SEE IMAGE
     Route: 048
     Dates: start: 20110118
  8. REVLIMID [Suspect]
     Indication: MULTIPLE MYELOMA
     Dosage: SEE IMAGE
     Route: 048
     Dates: start: 20110219
  9. REVLIMID [Suspect]
     Indication: MULTIPLE MYELOMA
     Dosage: SEE IMAGE
     Route: 048
     Dates: start: 20100902
  10. REVLIMID [Suspect]
     Indication: MULTIPLE MYELOMA
     Dosage: SEE IMAGE
     Route: 048
     Dates: start: 20101101
  11. REVLIMID [Suspect]
     Indication: MULTIPLE MYELOMA
     Dosage: SEE IMAGE
     Route: 048
     Dates: start: 20090801
  12. ACYCLOVIR [Concomitant]
  13. PLAVIX (CLOPIDOGREL SULFATE)(CAPSULES) [Concomitant]
  14. DOXYCYCLINE HYCLATE (DOXYCYCLINE HYCLATE)(UNKNOWN) [Concomitant]
  15. SYNTHROID (LEVOTHYROXINE SODIUM)(50 MICROGRAM, TABLETS) [Concomitant]
  16. HYDROCHLOROTHIAZIDE [Concomitant]

REACTIONS (3)
  - THROMBOPHLEBITIS SUPERFICIAL [None]
  - RASH [None]
  - MENINGITIS VIRAL [None]
